FAERS Safety Report 16990439 (Version 1)
Quarter: 2019Q4

REPORT INFORMATION
  Report Type: Spontaneous
  Country: US (occurrence: US)
  Receive Date: 20191103
  Receipt Date: 20191103
  Transmission Date: 20200122
  Serious: No
  Sender: FDA-Public Use
  Company Number: None

PATIENT
  Age: 64 Year
  Sex: Male
  Weight: 113 kg

DRUGS (1)
  1. PATISIRAN [Suspect]
     Active Substance: PATISIRAN SODIUM
     Dates: start: 20191101

REACTIONS (5)
  - Pain [None]
  - Tenderness [None]
  - Erythema [None]
  - Swelling [None]
  - Injection site extravasation [None]

NARRATIVE: CASE EVENT DATE: 20191101
